FAERS Safety Report 4578179-0 (Version None)
Quarter: 2005Q1

REPORT INFORMATION
  Report Type: 
  Country: None (occurrence: None)
  Receive Date: 20050209
  Receipt Date: 20050127
  Transmission Date: 20050727
  Serious: Yes (Life-Threatening, Hospitalization, Other)
  Sender: FDA-Public Use
  Company Number: 2005022172

PATIENT
  Age: 28 Year
  Sex: Female

DRUGS (3)
  1. PRODIF (FOSFLUCONAZOLE) [Suspect]
     Indication: FUNGAL INFECTION
     Dosage: 504.5 MG (1 D), INTRAVENOUS
     Route: 042
     Dates: start: 20041214, end: 20050101
  2. PREDNISONE [Concomitant]
  3. TIENAM (CILASTATIN, IMIPENEM) [Concomitant]

REACTIONS (6)
  - AGRANULOCYTOSIS [None]
  - CONDITION AGGRAVATED [None]
  - DISSEMINATED INTRAVASCULAR COAGULATION [None]
  - GASTROINTESTINAL HAEMORRHAGE [None]
  - MALAISE [None]
  - PULMONARY MYCOSIS [None]
